FAERS Safety Report 15235478 (Version 1)
Quarter: 2018Q3

REPORT INFORMATION
  Report Type: Spontaneous
  Country: AT (occurrence: AT)
  Receive Date: 20180803
  Receipt Date: 20180803
  Transmission Date: 20181010
  Serious: Yes (Hospitalization)
  Sender: FDA-Public Use
  Company Number: AT-ACCORD-070327

PATIENT
  Age: 44 Year
  Sex: Male

DRUGS (8)
  1. LITHIUM. [Suspect]
     Active Substance: LITHIUM
     Indication: PRODUCT USED FOR UNKNOWN INDICATION
     Dosage: 1800 MG 16?MAR?2017 TO 18?MAR?2017
     Dates: end: 20170313
  2. ARIPIPRAZOLE. [Concomitant]
     Active Substance: ARIPIPRAZOLE
     Indication: PRODUCT USED FOR UNKNOWN INDICATION
     Dosage: 10 MG, UNKNOWN
     Dates: start: 20170314, end: 20170318
  3. QUETIAPINE. [Concomitant]
     Active Substance: QUETIAPINE
     Indication: PRODUCT USED FOR UNKNOWN INDICATION
     Dates: end: 20170313
  4. ZYPREXA [Suspect]
     Active Substance: OLANZAPINE
     Indication: PRODUCT USED FOR UNKNOWN INDICATION
     Dosage: 30 MG FROM 08?APR?2017
     Route: 048
     Dates: start: 20170314, end: 20170314
  5. LORAZEPAM. [Concomitant]
     Active Substance: LORAZEPAM
     Indication: PRODUCT USED FOR UNKNOWN INDICATION
     Dates: start: 20170406
  6. DEXMEDETOMIDINE. [Suspect]
     Active Substance: DEXMEDETOMIDINE
     Indication: PRODUCT USED FOR UNKNOWN INDICATION
     Route: 042
     Dates: start: 20170314, end: 20170329
  7. ZUCLOPENTHIXOL [Concomitant]
     Active Substance: ZUCLOPENTHIXOL
     Indication: PRODUCT USED FOR UNKNOWN INDICATION
     Dates: start: 20170414
  8. VALPROIC ACID. [Concomitant]
     Active Substance: VALPROIC ACID
     Indication: PRODUCT USED FOR UNKNOWN INDICATION
     Dosage: 2000 MG, UNKNOWN
     Dates: start: 20170317, end: 20170317

REACTIONS (6)
  - Nephrogenic diabetes insipidus [Recovered/Resolved]
  - Toxicity to various agents [Recovered/Resolved]
  - Overdose [Unknown]
  - Pneumonia aspiration [Recovered/Resolved]
  - Hyperthermia [Recovered/Resolved]
  - Agitation [Unknown]

NARRATIVE: CASE EVENT DATE: 20170314
